FAERS Safety Report 8219745-0 (Version None)
Quarter: 2012Q1

REPORT INFORMATION
  Report Type: 
  Country: None (occurrence: None)
  Receive Date: 20120319
  Receipt Date: 20120309
  Transmission Date: 20120608
  Serious: Yes (Hospitalization)
  Sender: FDA-Public Use
  Company Number: FR-FRI-1000029154

PATIENT
  Sex: Female

DRUGS (11)
  1. ESCITALOPRAM [Suspect]
     Indication: DEPRESSION
     Dosage: 15 MG
     Route: 048
     Dates: start: 20110621, end: 20110703
  2. DILTIAZEM HCL [Concomitant]
  3. IRBESARTAN [Concomitant]
  4. PREVISCAN [Suspect]
     Indication: ATRIAL FIBRILLATION
     Dosage: 3 OR 4 TABLETS DAILY
     Route: 048
     Dates: start: 20110214, end: 20110703
  5. LEVOTHYROXINE SODIUM [Concomitant]
  6. LEVOFLOXACIN [Suspect]
     Indication: INTERVERTEBRAL DISCITIS
     Dosage: 250 MG
     Route: 048
     Dates: start: 20110621, end: 20110703
  7. MOVIPREP [Concomitant]
  8. RIFADIN [Concomitant]
     Indication: INTERVERTEBRAL DISCITIS
     Dates: start: 20110621, end: 20110703
  9. PLAVIX [Concomitant]
  10. XANAX [Concomitant]
  11. ACETAMINOPHEN [Concomitant]

REACTIONS (3)
  - DRUG INTERACTION [None]
  - COAGULOPATHY [None]
  - INTERNATIONAL NORMALISED RATIO INCREASED [None]
